FAERS Safety Report 16485462 (Version 1)
Quarter: 2019Q2

REPORT INFORMATION
  Report Type: Spontaneous
  Country: US (occurrence: US)
  Receive Date: 20190627
  Receipt Date: 20190627
  Transmission Date: 20190711
  Serious: No
  Sender: FDA-Public Use
  Company Number: US-BRISTOL-MYERS SQUIBB COMPANY-BMS-2019-062887

PATIENT
  Sex: Male

DRUGS (2)
  1. YERVOY [Suspect]
     Active Substance: IPILIMUMAB
     Indication: BRAIN CANCER METASTATIC
     Dosage: UNK UNK, Q2WK
     Route: 065
     Dates: start: 2019
  2. OPDIVO [Suspect]
     Active Substance: NIVOLUMAB
     Indication: BRAIN CANCER METASTATIC
     Dosage: UNK UNK, Q2WK
     Route: 065
     Dates: start: 2019

REACTIONS (3)
  - Intentional product use issue [Unknown]
  - Gingivitis [Unknown]
  - Tooth infection [Unknown]
